FAERS Safety Report 6012515-3 (Version None)
Quarter: 2008Q4

REPORT INFORMATION
  Report Type: 
  Country: None (occurrence: None)
  Receive Date: 20081218
  Receipt Date: 20081212
  Transmission Date: 20090506
  Serious: Yes (Other)
  Sender: FDA-Public Use
  Company Number: US-ROXANE LABORATORIES, INC.-2008-RO-00412RO

PATIENT
  Sex: Female

DRUGS (4)
  1. FUROSEMIDE [Suspect]
  2. PIMECROLIMUS [Concomitant]
     Indication: PSORIASIS
  3. AMMONIUM LACTATE [Concomitant]
     Indication: PSORIASIS
  4. COAL TAR SHAMPOO [Concomitant]
     Indication: PSORIASIS

REACTIONS (5)
  - DEPRESSION [None]
  - DRUG HYPERSENSITIVITY [None]
  - SELF ESTEEM DECREASED [None]
  - SKIN DISORDER [None]
  - SOCIAL AVOIDANT BEHAVIOUR [None]
